FAERS Safety Report 4593974-X (Version None)
Quarter: 2005Q1

REPORT INFORMATION
  Report Type: 
  Country: None (occurrence: None)
  Receive Date: 20050218
  Receipt Date: 20050210
  Transmission Date: 20050727
  Serious: Yes (Hospitalization)
  Sender: FDA-Public Use
  Company Number: 200510111BNE

PATIENT
  Age: 36 Year
  Sex: Male

DRUGS (1)
  1. CIPROFLOXACIN [Suspect]
     Indication: DIARRHOEA

REACTIONS (4)
  - AGITATION [None]
  - COMA [None]
  - CONVULSION [None]
  - ENCEPHALITIS VIRAL [None]
